FAERS Safety Report 5551280-0 (Version None)
Quarter: 2007Q4

REPORT INFORMATION
  Report Type: 
  Country: None (occurrence: None)
  Receive Date: 20071212
  Receipt Date: 20071203
  Transmission Date: 20080405
  Serious: Yes (Hospitalization)
  Sender: FDA-Public Use
  Company Number: HQWYE341827SEP07

PATIENT
  Sex: Male
  Weight: 68 kg

DRUGS (8)
  1. SIROLIMUS [Suspect]
     Indication: PROPHYLAXIS AGAINST TRANSPLANT REJECTION
     Dosage: UNKNOWN
     Route: 048
     Dates: start: 20040206, end: 20060310
  2. SIROLIMUS [Suspect]
     Route: 048
     Dates: start: 20060311, end: 20070924
  3. SIROLIMUS [Suspect]
     Route: 048
     Dates: start: 20070925, end: 20070926
  4. SIROLIMUS [Suspect]
     Route: 048
     Dates: start: 20070927, end: 20071005
  5. SIMVASTATIN [Concomitant]
     Indication: HYPERCHOLESTEROLAEMIA
     Route: 048
     Dates: start: 20050426
  6. ATENOLOL [Concomitant]
     Indication: HYPERTENSION
     Route: 048
     Dates: start: 20070501
  7. MYCOPHENOLATE MOFETIL [Concomitant]
     Indication: PROPHYLAXIS AGAINST TRANSPLANT REJECTION
     Route: 048
     Dates: start: 20040220
  8. PREDNISONE [Concomitant]
     Indication: PROPHYLAXIS AGAINST TRANSPLANT REJECTION
     Route: 048
     Dates: start: 20010531

REACTIONS (1)
  - RENAL FAILURE ACUTE [None]
